FAERS Safety Report 6482841-2 (Version None)
Quarter: 2009Q4

REPORT INFORMATION
  Report Type: 
  Country: None (occurrence: None)
  Receive Date: 20091209
  Receipt Date: 20091024
  Transmission Date: 20100525
  Serious: No
  Sender: FDA-Public Use
  Company Number: US-AMGEN-KDL371187

PATIENT
  Sex: Female

DRUGS (2)
  1. ENBREL [Suspect]
     Indication: RHEUMATOID ARTHRITIS
     Route: 058
     Dates: start: 20090909
  2. METHOTREXATE [Concomitant]
     Route: 048

REACTIONS (5)
  - ASTHENIA [None]
  - COUGH [None]
  - DRUG INEFFECTIVE [None]
  - PYREXIA [None]
  - RHINORRHOEA [None]
